FAERS Safety Report 16257597 (Version 3)
Quarter: 2019Q2

REPORT INFORMATION
  Report Type: Spontaneous
  Country: CZ (occurrence: CZ)
  Receive Date: 20190430
  Receipt Date: 20190628
  Transmission Date: 20190711
  Serious: Yes (Hospitalization, Other)
  Sender: FDA-Public Use
  Company Number: CZ-SA-2019SA116981

PATIENT
  Sex: Male

DRUGS (9)
  1. CAPECITABINE. [Suspect]
     Active Substance: CAPECITABINE
     Indication: RECTAL CANCER
     Dosage: 3-0-3
     Dates: start: 201703
  2. FLUOROURACIL. [Suspect]
     Active Substance: FLUOROURACIL
     Indication: RECTAL CANCER
     Dosage: UNK UNK, QCY
     Dates: start: 201712
  3. IRINOTECAN [Suspect]
     Active Substance: IRINOTECAN
     Indication: RECTAL CANCER
     Dosage: UNK UNK, QCY
     Dates: start: 201712
  4. AVASTIN [Suspect]
     Active Substance: BEVACIZUMAB
     Indication: RECTAL CANCER
     Dosage: UNK
     Dates: start: 201703
  5. FOLINIC ACID [Suspect]
     Active Substance: LEUCOVORIN
     Indication: RECTAL CANCER
     Dosage: UNK UNK, QCY
     Dates: start: 201712
  6. TRIFLURIDINE. [Suspect]
     Active Substance: TRIFLURIDINE
     Indication: RECTAL CANCER
     Dosage: 20 MG TBL 3-0-3
     Dates: start: 201804
  7. OXALIPLATIN. [Suspect]
     Active Substance: OXALIPLATIN
     Indication: RECTAL CANCER
     Dosage: UNK UNK, QCY
     Dates: start: 201703
  8. ZALTRAP [Suspect]
     Active Substance: ZIV-AFLIBERCEPT
     Indication: RECTAL CANCER
     Dosage: UNK
     Dates: start: 201712
  9. TIPIRACIL [Suspect]
     Active Substance: TIPIRACIL
     Indication: RECTAL CANCER
     Dosage: 20 MG TBL 3-0-3
     Dates: start: 201804

REACTIONS (10)
  - Hypertension [Recovered/Resolved]
  - Neutropenia [Unknown]
  - Peritonsillar abscess [Recovered/Resolved]
  - Leukopenia [Unknown]
  - Gastrointestinal toxicity [Unknown]
  - Disease progression [Unknown]
  - Palmar-plantar erythrodysaesthesia syndrome [Unknown]
  - Condition aggravated [Unknown]
  - Diarrhoea [Unknown]
  - Skin toxicity [Unknown]
